FAERS Safety Report 4851868-6 (Version None)
Quarter: 2005Q4

REPORT INFORMATION
  Report Type: 
  Country: None (occurrence: None)
  Receive Date: 20051125
  Receipt Date: 20050228
  Transmission Date: 20060501
  Serious: Yes (Other)
  Sender: FDA-Public Use
  Company Number: 2005026434

PATIENT
  Sex: Female
  Weight: 90.7194 kg

DRUGS (5)
  1. TIKOSYN [Suspect]
     Indication: ATRIAL FIBRILLATION
     Dosage: 500 MCG (250 MCG, 2 IN 1 D), ORAL
     Route: 048
     Dates: start: 20030501
  2. GABAPENTIN [Concomitant]
  3. LOSARTAN POTASSIUM [Concomitant]
  4. ASPIRIN [Concomitant]
  5. CARVEDILOL [Concomitant]

REACTIONS (5)
  - ATRIAL FIBRILLATION [None]
  - BLOOD CHOLESTEROL INCREASED [None]
  - FLUID RETENTION [None]
  - SLUGGISHNESS [None]
  - WEIGHT INCREASED [None]
